FAERS Safety Report 7874276 (Version 7)
Quarter: 2013Q2

REPORT INFORMATION
  Report Type: Spontaneous
  Country: US (occurrence: US)
  Receive Date: 20110328
  Receipt Date: 20130610
  Transmission Date: 20140414
  Serious: Yes (Other)
  Sender: FDA-Public Use
  Company Number: US-ASTRAZENECA-2011SE15156

PATIENT
  Age: 54 Year
  Sex: Female
  Weight: 86.2 kg

DRUGS (57)
  1. SEROQUEL [Suspect]
     Indication: BIPOLAR DISORDER
     Route: 048
     Dates: start: 1995
  2. SEROQUEL [Suspect]
     Indication: BIPOLAR I DISORDER
     Route: 048
     Dates: start: 1995
  3. SEROQUEL [Suspect]
     Indication: PANIC ATTACK
     Route: 048
     Dates: start: 1995
  4. SEROQUEL [Suspect]
     Indication: DEPRESSION
     Route: 048
     Dates: start: 1995
  5. SEROQUEL [Suspect]
     Indication: BIPOLAR DISORDER
     Route: 048
     Dates: start: 1999, end: 2008
  6. SEROQUEL [Suspect]
     Indication: BIPOLAR I DISORDER
     Route: 048
     Dates: start: 1999, end: 2008
  7. SEROQUEL [Suspect]
     Indication: PANIC ATTACK
     Route: 048
     Dates: start: 1999, end: 2008
  8. SEROQUEL [Suspect]
     Indication: DEPRESSION
     Route: 048
     Dates: start: 1999, end: 2008
  9. SEROQUEL [Suspect]
     Indication: BIPOLAR DISORDER
     Route: 048
  10. SEROQUEL [Suspect]
     Indication: BIPOLAR I DISORDER
     Route: 048
  11. SEROQUEL [Suspect]
     Indication: PANIC ATTACK
     Route: 048
  12. SEROQUEL [Suspect]
     Indication: DEPRESSION
     Route: 048
  13. SEROQUEL [Suspect]
     Indication: BIPOLAR DISORDER
     Route: 048
  14. SEROQUEL [Suspect]
     Indication: BIPOLAR I DISORDER
     Route: 048
  15. SEROQUEL [Suspect]
     Indication: PANIC ATTACK
     Route: 048
  16. SEROQUEL [Suspect]
     Indication: DEPRESSION
     Route: 048
  17. SEROQUEL [Suspect]
     Indication: BIPOLAR DISORDER
     Route: 048
  18. SEROQUEL [Suspect]
     Indication: BIPOLAR I DISORDER
     Route: 048
  19. SEROQUEL [Suspect]
     Indication: PANIC ATTACK
     Route: 048
  20. SEROQUEL [Suspect]
     Indication: DEPRESSION
     Route: 048
  21. SEROQUEL [Suspect]
     Indication: BIPOLAR DISORDER
     Dosage: 200 MG AND 300 MG, TOTAL DAILY DOSE: 500 MG
     Route: 048
  22. SEROQUEL [Suspect]
     Indication: BIPOLAR I DISORDER
     Dosage: 200 MG AND 300 MG, TOTAL DAILY DOSE: 500 MG
     Route: 048
  23. SEROQUEL [Suspect]
     Indication: PANIC ATTACK
     Dosage: 200 MG AND 300 MG, TOTAL DAILY DOSE: 500 MG
     Route: 048
  24. SEROQUEL [Suspect]
     Indication: DEPRESSION
     Dosage: 200 MG AND 300 MG, TOTAL DAILY DOSE: 500 MG
     Route: 048
  25. SEROQUEL [Suspect]
     Indication: BIPOLAR DISORDER
     Dosage: 100 MG AT LUNCH AND 400 MG AT BEDTIME
     Route: 048
  26. SEROQUEL [Suspect]
     Indication: BIPOLAR I DISORDER
     Dosage: 100 MG AT LUNCH AND 400 MG AT BEDTIME
     Route: 048
  27. SEROQUEL [Suspect]
     Indication: PANIC ATTACK
     Dosage: 100 MG AT LUNCH AND 400 MG AT BEDTIME
     Route: 048
  28. SEROQUEL [Suspect]
     Indication: DEPRESSION
     Dosage: 100 MG AT LUNCH AND 400 MG AT BEDTIME
     Route: 048
  29. SEROQUEL [Suspect]
     Indication: BIPOLAR DISORDER
     Route: 048
  30. SEROQUEL [Suspect]
     Indication: BIPOLAR I DISORDER
     Route: 048
  31. SEROQUEL [Suspect]
     Indication: PANIC ATTACK
     Route: 048
  32. SEROQUEL [Suspect]
     Indication: DEPRESSION
     Route: 048
  33. LISINOPRIL [Suspect]
     Indication: BLOOD PRESSURE ABNORMAL
     Route: 048
     Dates: start: 2011
  34. LISINOPRIL [Suspect]
     Indication: DIABETIC NEPHROPATHY
     Route: 048
     Dates: start: 2011
  35. LISINOPRIL [Suspect]
     Indication: BLOOD PRESSURE ABNORMAL
     Route: 048
  36. LISINOPRIL [Suspect]
     Indication: DIABETIC NEPHROPATHY
     Route: 048
  37. UNSPECIFIED BETA BLOCKER [Suspect]
     Route: 065
  38. METOPROLOL TARTRATE [Concomitant]
     Indication: BLOOD PRESSURE ABNORMAL
     Route: 048
     Dates: start: 2008
  39. BUDESONIDE [Concomitant]
     Indication: CHRONIC OBSTRUCTIVE PULMONARY DISEASE
     Route: 055
  40. CYMBALTA [Concomitant]
     Indication: MOOD SWINGS
  41. CYMBALTA [Concomitant]
     Indication: MOOD SWINGS
     Dosage: 100 MG AT LUNCH AND 400 MG AT DINNER
     Route: 048
  42. CYMBALTA [Concomitant]
     Indication: MOOD SWINGS
  43. HUMALOG [Concomitant]
     Indication: DIABETES MELLITUS
     Route: 058
     Dates: start: 2008
  44. HUMALOG [Concomitant]
     Indication: DIABETES MELLITUS
     Dosage: 75/25 INSULIN 90 UNITS TWO TIMES A DAY
     Route: 058
  45. TRILIPIX [Concomitant]
     Indication: BLOOD TRIGLYCERIDES ABNORMAL
     Route: 048
  46. NITROGLYCERINE [Concomitant]
     Indication: CARDIAC DISORDER
     Route: 048
  47. ADVAIR [Concomitant]
  48. ALBUTEROL [Concomitant]
     Indication: CHRONIC OBSTRUCTIVE PULMONARY DISEASE
     Route: 055
  49. TRICOR [Concomitant]
  50. TRICOR [Concomitant]
  51. METFORMIN [Concomitant]
     Indication: DIABETES MELLITUS
     Route: 048
     Dates: start: 2003
  52. LOVASTATIN [Concomitant]
     Indication: HYPERCHOLESTEROLAEMIA
     Route: 048
  53. LOVASTATIN [Concomitant]
     Indication: HYPERCHOLESTEROLAEMIA
     Route: 048
  54. GABAPENTIN [Concomitant]
     Indication: MOOD SWINGS
     Route: 048
  55. FUROSEMIDE [Concomitant]
     Indication: FLUID RETENTION
     Dates: start: 2008
  56. IPRATROPIUM [Concomitant]
     Indication: CHRONIC OBSTRUCTIVE PULMONARY DISEASE
     Route: 055
  57. VITAMINS [Concomitant]

REACTIONS (17)
  - Neoplasm malignant [Unknown]
  - Diabetes mellitus [Unknown]
  - Hypertension [Unknown]
  - Heart rate abnormal [Unknown]
  - Thinking abnormal [Unknown]
  - Feeling abnormal [Unknown]
  - Crying [Unknown]
  - Apathy [Unknown]
  - Impaired work ability [Unknown]
  - Pneumonia [Unknown]
  - Weight decreased [Unknown]
  - Lung disorder [Unknown]
  - Weight increased [Unknown]
  - Blood cholesterol increased [Unknown]
  - Palpitations [Recovered/Resolved]
  - Intentional drug misuse [Unknown]
  - Drug dose omission [Unknown]
